FAERS Safety Report 20727452 (Version 1)
Quarter: 2022Q2

REPORT INFORMATION
  Report Type: Spontaneous
  Country: US (occurrence: None)
  Receive Date: 20220419
  Receipt Date: 20220419
  Transmission Date: 20220721
  Serious: No
  Sender: FDA-Public Use
  Company Number: US-ROCHE-2969056

PATIENT
  Age: 38 Year
  Sex: Male
  Weight: 93.524 kg

DRUGS (1)
  1. XOFLUZA [Suspect]
     Active Substance: BALOXAVIR MARBOXIL
     Indication: Product used for unknown indication
     Dosage: 2 PILLS (EACH PILL IS 40MG) IN ONE DAY ;ONGOING: NO
     Route: 048
     Dates: start: 20211124, end: 20211124

REACTIONS (3)
  - Throat tightness [Not Recovered/Not Resolved]
  - Dry throat [Not Recovered/Not Resolved]
  - Vomiting [Recovered/Resolved]

NARRATIVE: CASE EVENT DATE: 20211125
